FAERS Safety Report 6869546-0 (Version None)
Quarter: 2010Q3

REPORT INFORMATION
  Report Type: 
  Country: None (occurrence: None)
  Receive Date: 20100722
  Receipt Date: 20080815
  Transmission Date: 20110219
  Serious: No
  Sender: FDA-Public Use
  Company Number: US-PFIZER INC-2008068769

PATIENT
  Age: 56 Year
  Sex: Female
  Weight: 65.77 kg

DRUGS (6)
  1. CHANTIX [Suspect]
     Indication: SMOKING CESSATION THERAPY
     Dates: start: 20080701
  2. GLIMEPIRIDE [Concomitant]
  3. SIMVASTATIN [Concomitant]
  4. DAYPRO [Concomitant]
  5. DETROL LA [Concomitant]
  6. CHONDROITIN/GLUCOSAMINE [Concomitant]

REACTIONS (4)
  - ABDOMINAL DISCOMFORT [None]
  - ABDOMINAL PAIN UPPER [None]
  - DRUG DOSE OMISSION [None]
  - MEMORY IMPAIRMENT [None]
